FAERS Safety Report 5298937-7 (Version None)
Quarter: 2007Q2

REPORT INFORMATION
  Report Type: 
  Country: None (occurrence: None)
  Receive Date: 20070417
  Receipt Date: 20070404
  Transmission Date: 20071010
  Serious: Yes (Hospitalization)
  Sender: FDA-Public Use
  Company Number: PHNU2007PL01450

PATIENT
  Age: 52 Year
  Sex: Male
  Weight: 56.6 kg

DRUGS (5)
  1. MYFORTIC [Suspect]
     Indication: RENAL TRANSPLANT
     Dosage: 720MG/DAY
     Route: 048
     Dates: start: 20070316
  2. CELLCEPT [Concomitant]
     Indication: RENAL TRANSPLANT
     Dosage: 1000MG/DAY
     Route: 048
     Dates: start: 20070302, end: 20070315
  3. ENCORTON [Concomitant]
     Indication: RENAL TRANSPLANT
     Dosage: 20MG/DAY
     Route: 048
     Dates: start: 20070322
  4. PROGRAF [Concomitant]
     Indication: RENAL TRANSPLANT
     Route: 048
     Dates: start: 20070313
  5. NEORAL [Concomitant]
     Indication: RENAL TRANSPLANT
     Dosage: 350MG/DAY
     Route: 048
     Dates: start: 20070302, end: 20070315

REACTIONS (3)
  - ACINETOBACTER INFECTION [None]
  - IMPAIRED HEALING [None]
  - WOUND INFECTION BACTERIAL [None]
